FAERS Safety Report 9393836 (Version 1)
Quarter: 2013Q3

REPORT INFORMATION
  Report Type: Spontaneous
  Country: CO (occurrence: CO)
  Receive Date: 20130710
  Receipt Date: 20130710
  Transmission Date: 20140515
  Serious: Yes (Other)
  Sender: FDA-Public Use
  Company Number: CO-PFIZER INC-2013202394

PATIENT
  Age: 43 Year
  Sex: Male

DRUGS (1)
  1. ADVIL [Suspect]
     Indication: INFLUENZA
     Dosage: 2 CAPSULES, 3X/DAY
     Route: 048
     Dates: start: 20130604

REACTIONS (3)
  - Hypertension [Not Recovered/Not Resolved]
  - Vision blurred [Not Recovered/Not Resolved]
  - Dizziness [Not Recovered/Not Resolved]
